FAERS Safety Report 7712752-3 (Version None)
Quarter: 2011Q3

REPORT INFORMATION
  Report Type: 
  Country: None (occurrence: None)
  Receive Date: 20110826
  Receipt Date: 20110812
  Transmission Date: 20111222
  Serious: Yes (Death)
  Sender: FDA-Public Use
  Company Number: US-GLAXOSMITHKLINE-A0885471A

PATIENT
  Age: 47 Year
  Sex: Male

DRUGS (2)
  1. CONCURRENT MEDICATIONS [Concomitant]
  2. AVANDIA [Suspect]
     Indication: DIABETES MELLITUS
     Dosage: 8MG PER DAY
     Route: 048
     Dates: start: 20021231

REACTIONS (3)
  - DEATH [None]
  - MYOCARDIAL INFARCTION [None]
  - CARDIAC OPERATION [None]
